FAERS Safety Report 22109943 (Version 1)
Quarter: 2023Q1

REPORT INFORMATION
  Report Type: Other
  Country: FR (occurrence: None)
  Receive Date: 20230317
  Receipt Date: 20230317
  Transmission Date: 20230417
  Serious: Yes (Hospitalization, Other)
  Sender: FDA-Public Use
  Company Number: FR-USAntibiotics-000129

PATIENT
  Age: 33 Year
  Sex: Female

DRUGS (2)
  1. AMOXICILLIN\CLAVULANIC ACID [Suspect]
     Active Substance: AMOXICILLIN\CLAVULANIC ACID
     Indication: Pulmonary embolism
     Dosage: 1 GRAM 3 TIMES DAILY
  2. ACETAMINOPHEN [Suspect]
     Active Substance: ACETAMINOPHEN
     Indication: Hyperthermia

REACTIONS (7)
  - Pulmonary embolism [Recovering/Resolving]
  - Lymphadenopathy mediastinal [Recovering/Resolving]
  - Condition aggravated [Recovering/Resolving]
  - Folliculitis [Recovering/Resolving]
  - Pericardial effusion [Recovering/Resolving]
  - Drug ineffective [Recovering/Resolving]
  - Chest pain [Recovering/Resolving]
